FAERS Safety Report 8443908-2 (Version None)
Quarter: 2012Q2

REPORT INFORMATION
  Report Type: 
  Country: None (occurrence: None)
  Receive Date: 20120618
  Receipt Date: 20120605
  Transmission Date: 20120825
  Serious: Yes (Hospitalization)
  Sender: FDA-Public Use
  Company Number: US-BAYER-2012-043050

PATIENT
  Age: 38 Year
  Sex: Female
  Weight: 77.098 kg

DRUGS (5)
  1. YAZ [Suspect]
     Indication: ACNE
     Dosage: UNK
     Dates: start: 20080728, end: 20100630
  2. YASMIN [Suspect]
  3. YAZ [Suspect]
     Indication: PREMENSTRUAL SYNDROME
  4. BACTRIM [Concomitant]
     Dosage: 800-160
     Route: 048
     Dates: start: 20070101
  5. MOBIC [Concomitant]
     Dosage: UNK
     Dates: start: 20070101, end: 20110101

REACTIONS (11)
  - JUGULAR VEIN THROMBOSIS [None]
  - PANIC ATTACK [None]
  - ANXIETY [None]
  - DYSARTHRIA [None]
  - AMNESIA [None]
  - TRANSIENT ISCHAEMIC ATTACK [None]
  - CEREBRAL INFARCTION [None]
  - VIITH NERVE PARALYSIS [None]
  - INJURY [None]
  - PAIN [None]
  - MUSCULAR WEAKNESS [None]
